FAERS Safety Report 14833988 (Version 1)
Quarter: 2018Q2

REPORT INFORMATION
  Report Type: Spontaneous
  Country: US (occurrence: US)
  Receive Date: 20180501
  Receipt Date: 20180501
  Transmission Date: 20180711
  Serious: No
  Sender: FDA-Public Use
  Company Number: US-ROCHE-1957712

PATIENT

DRUGS (2)
  1. AVASTIN [Suspect]
     Active Substance: BEVACIZUMAB
     Indication: RENAL CELL CARCINOMA
     Route: 065
     Dates: start: 2003, end: 2003
  2. TARCEVA [Suspect]
     Active Substance: ERLOTINIB HYDROCHLORIDE
     Indication: RENAL CELL CARCINOMA
     Route: 065
     Dates: start: 2003

REACTIONS (2)
  - Off label use [Unknown]
  - Haematuria [Unknown]

NARRATIVE: CASE EVENT DATE: 2003
